FAERS Safety Report 6518779-1 (Version None)
Quarter: 2009Q4

REPORT INFORMATION
  Report Type: 
  Country: None (occurrence: None)
  Receive Date: 20091228
  Receipt Date: 20091222
  Transmission Date: 20100525
  Serious: Yes (Death, Life-Threatening)
  Sender: FDA-Public Use
  Company Number: US-BAYER-200943510NA

PATIENT
  Age: 59 Year
  Sex: Male
  Weight: 93 kg

DRUGS (8)
  1. SORAFENIB [Suspect]
     Indication: GALLBLADDER CANCER METASTATIC
     Dosage: TOTAL DAILY DOSE: 400 MG  UNIT DOSE: 100 MG
     Route: 048
     Dates: start: 20091117, end: 20091215
  2. SORAFENIB [Suspect]
     Dosage: INITIATED PROTOCOL IN MAY 2009. DATES; DOSE NOS
     Dates: start: 20090501
  3. OXALIPLATIN [Suspect]
     Indication: GALLBLADDER CANCER METASTATIC
     Dosage: TOTAL DAILY DOSE: 185.3 MG
     Route: 042
     Dates: start: 20091117
  4. OXALIPLATIN [Suspect]
     Dosage: TOTAL DAILY DOSE: 185.3 MG
     Route: 042
     Dates: start: 20091201
  5. OXALIPLATIN [Suspect]
     Dosage: INITIATED PROTOCOL IN MAY 2009. DATES; DOSES NOS
     Dates: start: 20090501
  6. CAPECITABINE [Suspect]
     Indication: GALLBLADDER CANCER METASTATIC
     Dosage: INITIATED PROTOCOL MAY 2009. DATES; DOSES NOS
     Dates: start: 20090501
  7. CAPECITABINE [Suspect]
     Dosage: UNIT DOSE: 500 MG
     Dates: start: 20091117, end: 20091119
  8. CAPECITABINE [Suspect]
     Dosage: UNIT DOSE: 500 MG
     Dates: start: 20091201, end: 20091203

REACTIONS (3)
  - ASCITES [None]
  - DEATH [None]
  - ILEUS [None]
